FAERS Safety Report 7694174-7 (Version None)
Quarter: 2011Q3

REPORT INFORMATION
  Report Type: 
  Country: None (occurrence: None)
  Receive Date: 20110819
  Receipt Date: 20110812
  Transmission Date: 20111222
  Serious: Yes (Death, Hospitalization)
  Sender: FDA-Public Use
  Company Number: US-ELI_LILLY_AND_COMPANY-US201105008632

PATIENT
  Sex: Male
  Weight: 83.447 kg

DRUGS (6)
  1. ALIMTA [Suspect]
     Dosage: 1000 MG, EVERY THREE WEEKS
     Route: 042
     Dates: start: 20110510
  2. COUMADIN [Concomitant]
  3. CORTICOSTEROIDS [Concomitant]
     Dosage: 10 MG, UNK
     Dates: start: 20110412
  4. ALIMTA [Suspect]
     Indication: NON-SMALL CELL LUNG CANCER
     Dosage: 800 MG, EVERY THREE WEEKS
     Route: 042
     Dates: start: 20110412
  5. FOLIC ACID [Concomitant]
     Dosage: 1 MG, UNK
     Route: 048
     Dates: start: 20110405
  6. VITAMIN B-12 [Concomitant]
     Dosage: 1000 MG, UNK
     Route: 030
     Dates: start: 20110405

REACTIONS (3)
  - ARTHRALGIA [None]
  - LUNG CARCINOMA CELL TYPE UNSPECIFIED STAGE IV [None]
  - JOINT SWELLING [None]
